FAERS Safety Report 9784065 (Version 4)
Quarter: 2016Q3

REPORT INFORMATION
  Report Type: Spontaneous
  Country: US (occurrence: US)
  Receive Date: 20131226
  Receipt Date: 20160907
  Transmission Date: 20161109
  Serious: Yes (Other)
  Sender: FDA-Public Use
  Company Number: US-BAYER-2013-156443

PATIENT
  Age: 43 Year
  Sex: Female
  Weight: 60 kg

DRUGS (4)
  1. MIRENA [Suspect]
     Active Substance: LEVONORGESTREL
     Indication: CONTRACEPTION
     Dosage: 20 MCG/24HR, CONT
     Route: 015
     Dates: start: 20050826, end: 20110921
  2. FLOVENT [Concomitant]
     Active Substance: FLUTICASONE PROPIONATE
     Dosage: UNK
     Dates: start: 1999, end: 2013
  3. DIPHENOXYLATE/ATROPINE [DIPHENOXYLATE HYDROCHLORIDE] [Concomitant]
  4. PROAIR HFA [Concomitant]
     Active Substance: ALBUTEROL SULFATE

REACTIONS (7)
  - Gastrointestinal injury [None]
  - Device issue [None]
  - Device use issue [None]
  - Diarrhoea haemorrhagic [None]
  - Injury [None]
  - Pain [None]
  - Abdominal pain upper [None]

NARRATIVE: CASE EVENT DATE: 201108
